FAERS Safety Report 16809034 (Version 1)
Quarter: 2019Q4

REPORT INFORMATION
  Report Type: Spontaneous
  Country: US (occurrence: US)
  Receive Date: 20190914
  Receipt Date: 20190914
  Transmission Date: 20200122
  Serious: No
  Sender: FDA-Public Use
  Company Number: None

PATIENT
  Age: 55 Year
  Sex: Female
  Weight: 76.5 kg

DRUGS (10)
  1. DIGOXIN. [Concomitant]
     Active Substance: DIGOXIN
  2. VITAMIN D3 [Concomitant]
     Active Substance: CHOLECALCIFEROL
  3. LOW-DOSE ASPIRIN [Concomitant]
     Active Substance: ASPIRIN
  4. UBIQUINOL (COQ10) [Concomitant]
  5. FISH OIL [Concomitant]
     Active Substance: FISH OIL
  6. WOMEN^S MULTI ONE A DAY [Concomitant]
  7. LISINIPRIL [Suspect]
     Active Substance: LISINOPRIL
     Indication: CARDIAC FAILURE CONGESTIVE
     Dosage: ?          QUANTITY:1 TABLET(S);?
     Route: 048
     Dates: start: 20190101, end: 20190510
  8. CARVEDILOL. [Concomitant]
     Active Substance: CARVEDILOL
  9. LISNIPRIL [Concomitant]
  10. FUROSEMIDE. [Concomitant]
     Active Substance: FUROSEMIDE

REACTIONS (6)
  - Urinary tract infection [None]
  - Urine output decreased [None]
  - Cough [None]
  - Peripheral swelling [None]
  - Pruritus [None]
  - Erythema [None]

NARRATIVE: CASE EVENT DATE: 20190509
